FAERS Safety Report 18545658 (Version 9)
Quarter: 2025Q1

REPORT INFORMATION
  Report Type: Report from Study
  Country: US (occurrence: US)
  Receive Date: 20201125
  Receipt Date: 20250113
  Transmission Date: 20250408
  Serious: Yes (Hospitalization)
  Sender: TAKEDA
  Company Number: US-TAKEDA-2020TUS051607

PATIENT
  Sex: Female
  Weight: 23 kg

DRUGS (15)
  1. TEDUGLUTIDE [Suspect]
     Active Substance: TEDUGLUTIDE
     Indication: Short-bowel syndrome
     Dosage: 1 MILLIGRAM, QD
  2. TEDUGLUTIDE [Suspect]
     Active Substance: TEDUGLUTIDE
     Dosage: 1 MILLIGRAM, QD
  3. TEDUGLUTIDE [Suspect]
     Active Substance: TEDUGLUTIDE
     Dosage: 1 MILLIGRAM, QD
  4. TEDUGLUTIDE [Suspect]
     Active Substance: TEDUGLUTIDE
     Dosage: 1.5 MILLIGRAM, QD
  5. TEDUGLUTIDE [Suspect]
     Active Substance: TEDUGLUTIDE
     Dosage: 1.8 MILLIGRAM, QD
  6. VITAMIN B12 [Concomitant]
     Active Substance: CYANOCOBALAMIN
  7. LACTASE [Concomitant]
     Active Substance: LACTASE
  8. FERROUS SULFATE [Concomitant]
     Active Substance: FERROUS SULFATE
  9. VITAMIN D [Concomitant]
     Active Substance: VITAMIN D NOS
  10. FAMOTIDINE [Concomitant]
     Active Substance: FAMOTIDINE
  11. NASCOBAL [Concomitant]
     Active Substance: CYANOCOBALAMIN
  12. VITAMIN D3 [Concomitant]
     Active Substance: CHOLECALCIFEROL
  13. SULFAMETHOXAZOLE AND TRIMETHOPRIM [Concomitant]
     Active Substance: SULFAMETHOXAZOLE\TRIMETHOPRIM
  14. CULTURELLE KIDS CHEWABLES [Concomitant]
  15. TPN [Concomitant]
     Active Substance: AMINO ACIDS\DEXTROSE\ELECTROLYTES NOS\SOYBEAN OIL

REACTIONS (7)
  - Gastroenteritis viral [Unknown]
  - Abnormal behaviour [Unknown]
  - Photosensitivity reaction [Unknown]
  - Weight increased [Unknown]
  - Increased appetite [Unknown]
  - Product availability issue [Unknown]
  - Product dose omission issue [Unknown]
